FAERS Safety Report 8762817 (Version 1)
Quarter: 2012Q4

REPORT INFORMATION
  Report Type: 
  Country: US (occurrence: US)
  Receive Date: 20120830
  Receipt Date: 20120830
  Transmission Date: 20130627
  Serious: Yes (Hospitalization)
  Sender: FDA-Public Use
  Company Number: US-MYLANLABS-2012S1017081

PATIENT
  Age: 46 Year
  Sex: Female

DRUGS (3)
  1. LEVETIRACETAM [Suspect]
     Indication: CONVULSION
     Route: 065
  2. PHENOBARBITAL [Suspect]
     Indication: CONVULSION
     Route: 065
  3. PHENYTOIN [Suspect]
     Indication: CONVULSION
     Route: 065

REACTIONS (1)
  - Hypothyroidism [Recovered/Resolved]
